FAERS Safety Report 7792446 (Version 9)
Quarter: 2013Q1

REPORT INFORMATION
  Report Type: Report from Study
  Country: JP (occurrence: JP)
  Receive Date: 20110131
  Receipt Date: 20130208
  Transmission Date: 20140127
  Serious: Yes (Other)
  Sender: FDA-Public Use
  Company Number: JP-JNJFOC-20110106969

PATIENT
  Age: 75 Year
  Sex: Male
  Weight: 53 kg

DRUGS (17)
  1. DUROTEP MT [Suspect]
     Indication: PAIN
     Route: 062
     Dates: start: 20110409, end: 20110422
  2. DUROTEP MT [Suspect]
     Indication: PAIN
     Route: 062
     Dates: start: 20110311, end: 20110407
  3. DUROTEP MT [Suspect]
     Indication: PAIN
     Route: 062
     Dates: start: 20101224, end: 20110121
  4. DUROTEP MT [Suspect]
     Indication: PAIN
     Route: 062
     Dates: start: 20110506, end: 20111216
  5. DUROTEP MT [Suspect]
     Indication: PAIN
     Route: 062
     Dates: start: 20110128
  6. DUROTEP MT [Suspect]
     Indication: PAIN
     Route: 062
     Dates: start: 20110408
  7. DUROTEP MT [Suspect]
     Indication: SPINAL COLUMN STENOSIS
     Route: 062
     Dates: start: 20110506, end: 20111216
  8. DUROTEP MT [Suspect]
     Indication: SPINAL COLUMN STENOSIS
     Route: 062
     Dates: start: 20110311, end: 20110407
  9. DUROTEP MT [Suspect]
     Indication: SPINAL COLUMN STENOSIS
     Route: 062
     Dates: start: 20101224, end: 20110121
  10. DUROTEP MT [Suspect]
     Indication: SPINAL COLUMN STENOSIS
     Route: 062
     Dates: start: 20110128
  11. DUROTEP MT [Suspect]
     Indication: SPINAL COLUMN STENOSIS
     Route: 062
     Dates: start: 20110409, end: 20110422
  12. DUROTEP MT [Suspect]
     Indication: SPINAL COLUMN STENOSIS
     Route: 062
     Dates: start: 20110408
  13. NOVAMIN [Suspect]
     Indication: PROPHYLAXIS
     Route: 048
     Dates: start: 20110107, end: 20110121
  14. NOVAMIN [Suspect]
     Indication: PROPHYLAXIS
     Route: 048
     Dates: start: 20101224, end: 20110106
  15. LYRICA [Concomitant]
     Indication: PAIN
     Route: 048
     Dates: start: 20101112
  16. UNKNOWN MEDICATION [Concomitant]
     Indication: PROPHYLAXIS
     Route: 048
     Dates: start: 20110107
  17. KETALAR [Concomitant]
     Indication: PAIN
     Route: 041
     Dates: start: 20090313

REACTIONS (11)
  - Salivary hypersecretion [Recovered/Resolved]
  - Malaise [Recovered/Resolved]
  - Dysphagia [Recovered/Resolved]
  - Asthenia [Recovered/Resolved]
  - Activities of daily living impaired [Unknown]
  - Gait disturbance [Unknown]
  - Nausea [Recovering/Resolving]
  - Vomiting [Recovering/Resolving]
  - Constipation [Recovering/Resolving]
  - Pruritus [Not Recovered/Not Resolved]
  - Blood creatine phosphokinase decreased [Recovered/Resolved]
